FAERS Safety Report 10439936 (Version 1)
Quarter: 2014Q3

REPORT INFORMATION
  Report Type: Spontaneous
  Country: US (occurrence: US)
  Receive Date: 20140908
  Receipt Date: 20140908
  Transmission Date: 20150326
  Serious: No
  Sender: FDA-Public Use
  Company Number: US-BRISTOL-MYERS SQUIBB COMPANY-19385202

PATIENT
  Age: 2 Decade
  Sex: Female

DRUGS (2)
  1. CELEXA [Concomitant]
     Active Substance: CITALOPRAM HYDROBROMIDE
  2. ABILIFY [Suspect]
     Active Substance: ARIPIPRAZOLE
     Indication: DEPRESSION
     Dosage: DOSE INCREASED TO 5 MG

REACTIONS (3)
  - Anxiety [Unknown]
  - Akathisia [Unknown]
  - Feeling jittery [Unknown]
